FAERS Safety Report 10729556 (Version 2)
Quarter: 2015Q1

REPORT INFORMATION
  Report Type: Spontaneous
  Country: FR (occurrence: FR)
  Receive Date: 20150122
  Receipt Date: 20150220
  Transmission Date: 20150721
  Serious: Yes (Other)
  Sender: FDA-Public Use
  Company Number: FR-SA-2015SA006981

PATIENT
  Age: 34 Year
  Sex: Male

DRUGS (1)
  1. STILNOX [Suspect]
     Active Substance: ZOLPIDEM TARTRATE
     Indication: AGITATION
     Dosage: DOSE 8-12 TABLET ONCE EVERY 3 WEEKS
     Route: 048

REACTIONS (7)
  - Toxicity to various agents [Unknown]
  - Drug abuse [Not Recovered/Not Resolved]
  - Myoclonus [Not Recovered/Not Resolved]
  - Impatience [Not Recovered/Not Resolved]
  - Restlessness [Unknown]
  - Abnormal behaviour [Unknown]
  - Tremor [Unknown]
